FAERS Safety Report 20335515 (Version 1)
Quarter: 2022Q1

REPORT INFORMATION
  Report Type: Spontaneous
  Country: IT (occurrence: IT)
  Receive Date: 20220114
  Receipt Date: 20220114
  Transmission Date: 20220424
  Serious: Yes (Other)
  Sender: FDA-Public Use
  Company Number: None

PATIENT
  Age: 66 Year
  Sex: Female
  Weight: 60 kg

DRUGS (5)
  1. DOCETAXEL [Suspect]
     Active Substance: DOCETAXEL
     Indication: Metaplastic breast carcinoma
     Dosage: UNKNOWN
     Route: 042
     Dates: start: 20210201, end: 20210801
  2. PERJETA [Suspect]
     Active Substance: PERTUZUMAB
     Indication: Metaplastic breast carcinoma
     Dosage: UNKNOWN
     Route: 042
     Dates: start: 20210201
  3. TRAZIMERA [Suspect]
     Active Substance: TRASTUZUMAB-QYYP
     Indication: Metaplastic breast carcinoma
     Dosage: UNKNOWN
     Route: 042
     Dates: start: 20210201
  4. ONDANSETRON HYDROCHLORIDE [Concomitant]
     Active Substance: ONDANSETRON HYDROCHLORIDE
     Indication: Vomiting
     Route: 042
     Dates: start: 20210201
  5. DEXAMETHASONE [Concomitant]
     Active Substance: DEXAMETHASONE
     Indication: Antiinflammatory therapy
     Route: 042
     Dates: start: 20210201

REACTIONS (11)
  - Diarrhoea [Recovering/Resolving]
  - Urticaria [Recovering/Resolving]
  - Fatigue [Recovering/Resolving]
  - Listless [Recovering/Resolving]
  - Paraesthesia [Recovering/Resolving]
  - Dysgeusia [Recovering/Resolving]
  - Leukopenia [Recovering/Resolving]
  - Onychoclasis [Recovering/Resolving]
  - Pruritus [Recovering/Resolving]
  - Alopecia [Recovering/Resolving]
  - Epistaxis [Recovering/Resolving]

NARRATIVE: CASE EVENT DATE: 20210217
